FAERS Safety Report 6244083-5 (Version None)
Quarter: 2009Q2

REPORT INFORMATION
  Report Type: 
  Country: None (occurrence: None)
  Receive Date: 20090625
  Receipt Date: 20090622
  Transmission Date: 20091009
  Serious: Yes (Life-Threatening, Hospitalization, Other)
  Sender: FDA-Public Use
  Company Number: FR-BRISTOL-MYERS SQUIBB COMPANY-14675128

PATIENT
  Age: 80 Year
  Sex: Female

DRUGS (7)
  1. COUMADIN [Suspect]
     Indication: ATRIAL FIBRILLATION
     Route: 048
     Dates: end: 20090518
  2. RAMIPRIL [Concomitant]
     Dates: start: 20090301, end: 20090520
  3. TARDYFERON [Concomitant]
     Dates: start: 20090301, end: 20090520
  4. DIGITALINE NATIVELLE [Concomitant]
     Dosage: FREQUENCY:1/2 PER DAY
     Dates: start: 20090401
  5. LASIX [Concomitant]
     Dosage: STRENGTH 40MG
  6. PNEUMOREL [Concomitant]
     Dates: start: 20090401, end: 20090520
  7. INIPOMP [Concomitant]

REACTIONS (4)
  - DIVERTICULUM INTESTINAL [None]
  - INTERNATIONAL NORMALISED RATIO INCREASED [None]
  - RECTAL HAEMORRHAGE [None]
  - SHOCK HAEMORRHAGIC [None]
